FAERS Safety Report 4268649-7 (Version None)
Quarter: 2004Q1

REPORT INFORMATION
  Report Type: 
  Country: None (occurrence: None)
  Receive Date: 20040112
  Receipt Date: 20040106
  Transmission Date: 20041129
  Serious: Yes (Life-Threatening)
  Sender: FDA-Public Use
  Company Number: WAES 0401GBR00030

PATIENT
  Age: 87 Year
  Sex: Female

DRUGS (7)
  1. BUMETANIDE [Concomitant]
     Indication: CARDIAC FAILURE CONGESTIVE
     Route: 048
     Dates: start: 20020701
  2. CITALOPRAM [Concomitant]
     Indication: DEPRESSION
     Route: 048
     Dates: start: 20020701
  3. FERROUS SULFATE [Concomitant]
     Route: 048
     Dates: start: 20031107
  4. ISOSORBIDE MONONITRATE [Concomitant]
     Indication: MYOCARDIAL INFARCTION
     Route: 048
     Dates: start: 20020701, end: 20031217
  5. PERINDOPRIL [Concomitant]
  6. VIOXX [Suspect]
     Indication: BACK PAIN
     Route: 048
     Dates: start: 20031112, end: 20031214
  7. SPIRONOLACTONE [Concomitant]
     Indication: CARDIAC FAILURE CONGESTIVE
     Route: 048
     Dates: start: 20020701, end: 20031217

REACTIONS (2)
  - MELAENA [None]
  - RECTAL HAEMORRHAGE [None]
